FAERS Safety Report 9633554 (Version 1)
Quarter: 2013Q4

REPORT INFORMATION
  Report Type: Spontaneous
  Country: GB (occurrence: GB)
  Receive Date: 20131021
  Receipt Date: 20131021
  Transmission Date: 20140711
  Serious: Yes (Other)
  Sender: FDA-Public Use
  Company Number: PHFR2013GB005780

PATIENT
  Age: 61 Year
  Sex: Male
  Weight: 76.36 kg

DRUGS (4)
  1. ALISKIREN [Suspect]
     Indication: HYPERTENSION
     Dosage: 300 MG, QD
     Route: 048
     Dates: end: 20130914
  2. ALISKIREN [Interacting]
     Dosage: 300 MG, QD
     Route: 048
  3. CO-AMOXICLAV [Interacting]
     Indication: OTITIS MEDIA ACUTE
     Dosage: 1 DF (AMOX 500MG/ CLAVU125MG)
     Route: 048
     Dates: start: 20130910, end: 20130913
  4. LEVOTHYROXINE [Concomitant]
     Dosage: 25 UG, QD

REACTIONS (8)
  - Liver function test abnormal [Recovering/Resolving]
  - Nausea [Unknown]
  - Malaise [Unknown]
  - Faeces discoloured [Unknown]
  - Liver tenderness [Unknown]
  - Drug interaction [Unknown]
  - Chromaturia [Unknown]
  - Hepatomegaly [Unknown]
